FAERS Safety Report 5787684-0 (Version None)
Quarter: 2008Q2

REPORT INFORMATION
  Report Type: 
  Country: None (occurrence: None)
  Receive Date: 20080625
  Receipt Date: 20071010
  Transmission Date: 20081010
  Serious: No
  Sender: FDA-Public Use
  Company Number: US-ASTRAZENECA-2007UW23491

PATIENT
  Age: 10 Year
  Sex: Male

DRUGS (2)
  1. PULMICORT-100 [Suspect]
     Route: 055
  2. XOPENEX [Suspect]
     Indication: ASTHMA
     Dosage: 0.63 MG/3ML

REACTIONS (4)
  - ANXIETY [None]
  - INITIAL INSOMNIA [None]
  - MEDICATION ERROR [None]
  - PAIN IN EXTREMITY [None]
